FAERS Safety Report 4765739-7 (Version None)
Quarter: 2005Q3

REPORT INFORMATION
  Report Type: 
  Country: None (occurrence: None)
  Receive Date: 20050906
  Receipt Date: 20050822
  Transmission Date: 20060218
  Serious: Yes (Hospitalization)
  Sender: FDA-Public Use
  Company Number: JP_050807389

PATIENT
  Age: 61 Year
  Sex: Male
  Weight: 60 kg

DRUGS (6)
  1. ZYPREXA [Suspect]
     Indication: SCHIZOPHRENIA
     Dosage: 15 MG DAY
     Dates: start: 20040607
  2. ROHYPNOL (FUNITRAZEPAM) [Concomitant]
  3. VITAMIN A [Concomitant]
  4. TEGRETOL [Concomitant]
  5. PURSENNID [Concomitant]
  6. TOLEDOMIN (MILNACIPRAN HYDROCHLORIDE) [Concomitant]

REACTIONS (8)
  - AGGRESSION [None]
  - ANGER [None]
  - DEPRESSED MOOD [None]
  - HOSTILITY [None]
  - LIMB INJURY [None]
  - PARANOIA [None]
  - SELF INJURIOUS BEHAVIOUR [None]
  - TENSION [None]
